FAERS Safety Report 4560865-X (Version None)
Quarter: 2005Q1

REPORT INFORMATION
  Report Type: 
  Country: None (occurrence: None)
  Receive Date: 20050121
  Receipt Date: 20050107
  Transmission Date: 20050727
  Serious: Yes (Hospitalization)
  Sender: FDA-Public Use
  Company Number: CA-SHR-04-023322

PATIENT
  Age: 44 Year
  Sex: Female

DRUGS (3)
  1. BETASERON [Suspect]
     Indication: MULTIPLE SCLEROSIS
     Dosage: 8 MIU, EVERY 2 D, SUBCUTANEOUS
     Route: 058
     Dates: start: 19940313
  2. VENTOLIN [Concomitant]
  3. FLOVENT [Concomitant]

REACTIONS (9)
  - ABDOMINAL PAIN UPPER [None]
  - BURNING SENSATION [None]
  - CHOLELITHIASIS [None]
  - CONDITION AGGRAVATED [None]
  - EATING DISORDER [None]
  - INJECTION SITE REACTION [None]
  - MULTIPLE SCLEROSIS [None]
  - PROCEDURAL COMPLICATION [None]
  - WEIGHT DECREASED [None]
